FAERS Safety Report 4337568-X (Version None)
Quarter: 2004Q2

REPORT INFORMATION
  Report Type: 
  Country: None (occurrence: None)
  Receive Date: 20040413
  Receipt Date: 20030418
  Transmission Date: 20050107
  Serious: No
  Sender: FDA-Public Use
  Company Number: US-GLAXOSMITHKLINE-A0405420A

PATIENT
  Age: 40 Year
  Sex: Female

DRUGS (10)
  1. AGENERASE [Suspect]
     Indication: HIV INFECTION
     Dosage: 4CAP TWICE PER DAY
     Route: 048
     Dates: start: 20030410, end: 20030418
  2. NORVIR [Concomitant]
  3. ZIAGEN [Concomitant]
  4. EPIVIR [Concomitant]
  5. TRILEPTAL [Concomitant]
  6. SINGULAIR [Concomitant]
  7. ZITHROMAX [Concomitant]
  8. BACTRIM [Concomitant]
  9. IMODIUM [Concomitant]
  10. FLEXERIL [Concomitant]

REACTIONS (1)
  - PARAESTHESIA CIRCUMORAL [None]
